FAERS Safety Report 11120347 (Version 2)
Quarter: 2015Q2

REPORT INFORMATION
  Report Type: Report from Study
  Country: VE (occurrence: VE)
  Receive Date: 20150518
  Receipt Date: 20150602
  Transmission Date: 20150821
  Serious: Yes (Hospitalization)
  Sender: FDA-Public Use
  Company Number: PHHY2015VE055872

PATIENT
  Sex: Female

DRUGS (6)
  1. ACLASTA [Suspect]
     Active Substance: ZOLEDRONIC ACID
     Indication: OSTEOPOROSIS
     Dosage: 5 MG, ANNUALLY
     Route: 042
     Dates: start: 20120426
  2. NORVASC [Concomitant]
     Active Substance: AMLODIPINE BESYLATE
     Indication: TENSION
     Dosage: 5 MG, QD
     Route: 065
  3. ROCALTROL [Concomitant]
     Active Substance: CALCITRIOL
     Indication: BONE DISORDER
     Dosage: 5 MG, BID
     Route: 065
  4. ACLASTA [Suspect]
     Active Substance: ZOLEDRONIC ACID
     Dosage: 5 MG, ANNUALLY
     Route: 042
     Dates: start: 20140515
  5. ACLASTA [Suspect]
     Active Substance: ZOLEDRONIC ACID
     Dosage: 5 MG, ANNUALLY
     Route: 042
     Dates: start: 20130501
  6. PLAVIX [Concomitant]
     Active Substance: CLOPIDOGREL BISULFATE
     Indication: ARRHYTHMIA
     Dosage: 75 MG, QOD
     Route: 065

REACTIONS (5)
  - Blood calcium decreased [Recovering/Resolving]
  - Muscle spasms [Recovered/Resolved]
  - Fatigue [Not Recovered/Not Resolved]
  - Thyroid neoplasm [Recovering/Resolving]
  - Speech disorder [Not Recovered/Not Resolved]
